FAERS Safety Report 5295912-3 (Version None)
Quarter: 2007Q2

REPORT INFORMATION
  Report Type: 
  Country: None (occurrence: None)
  Receive Date: 20070410
  Receipt Date: 20070410
  Transmission Date: 20071010
  Serious: No
  Sender: FDA-Public Use
  Company Number: None

PATIENT

DRUGS (1)
  1. GARAMYCIN OPHTHALMIC OINTMENT [Suspect]
     Dosage: OINTMENT

REACTIONS (4)
  - DRUG DISPENSING ERROR [None]
  - DRY EYE [None]
  - MEDICATION ERROR [None]
  - OCULAR HYPERAEMIA [None]
